FAERS Safety Report 9391464 (Version 1)
Quarter: 2013Q3

REPORT INFORMATION
  Report Type: Spontaneous
  Country: US (occurrence: None)
  Receive Date: 20130705
  Receipt Date: 20130705
  Transmission Date: 20140515
  Serious: Yes (Hospitalization)
  Sender: FDA-Public Use
  Company Number: IMP_06731_2013

PATIENT
  Age: 17 Year
  Sex: Female

DRUGS (1)
  1. BACLOFEN [Suspect]
     Indication: MUSCLE SPASTICITY

REACTIONS (14)
  - Abnormal behaviour [None]
  - Insomnia [None]
  - Hallucinations, mixed [None]
  - Delusion [None]
  - Homicidal ideation [None]
  - Pressure of speech [None]
  - Screaming [None]
  - Affective disorder [None]
  - Joint contracture [None]
  - Major depression [None]
  - Psychotic disorder [None]
  - Bipolar I disorder [None]
  - Agitation [None]
  - Mental status changes [None]
